FAERS Safety Report 10383930 (Version 1)
Quarter: 2014Q3

REPORT INFORMATION
  Report Type: Spontaneous
  Country: CN (occurrence: CN)
  Receive Date: 20140814
  Receipt Date: 20140814
  Transmission Date: 20150326
  Serious: No
  Sender: FDA-Public Use
  Company Number: CN-JNJFOC-20140801584

PATIENT
  Age: 76 Year
  Sex: Female

DRUGS (1)
  1. DURAGESIC [Suspect]
     Active Substance: FENTANYL
     Indication: RECTAL CANCER
     Route: 062
     Dates: start: 20140730

REACTIONS (3)
  - Wrong technique in drug usage process [Unknown]
  - Inadequate analgesia [Unknown]
  - Product quality issue [Unknown]
